FAERS Safety Report 5451208-8 (Version None)
Quarter: 2007Q3

REPORT INFORMATION
  Report Type: 
  Country: None (occurrence: None)
  Receive Date: 20070913
  Receipt Date: 20070910
  Transmission Date: 20080115
  Serious: Yes (Life-Threatening)
  Sender: FDA-Public Use
  Company Number: JP-JNJFOC-20070901772

PATIENT
  Sex: Female

DRUGS (2)
  1. ITRIZOLE [Suspect]
     Indication: URINARY TRACT INFECTION FUNGAL
     Route: 041
  2. ITRIZOLE [Suspect]
     Indication: FUNGAEMIA
     Route: 041

REACTIONS (2)
  - RENAL DISORDER [None]
  - WHITE BLOOD CELL COUNT DECREASED [None]
